FAERS Safety Report 4554757-X (Version None)
Quarter: 2005Q1

REPORT INFORMATION
  Report Type: 
  Country: None (occurrence: None)
  Receive Date: 20050118
  Receipt Date: 20040728
  Transmission Date: 20050727
  Serious: Yes (Hospitalization)
  Sender: FDA-Public Use
  Company Number: JP-GLAXOSMITHKLINE-B0341136A

PATIENT
  Age: 60 Year
  Sex: Male
  Weight: 50 kg

DRUGS (5)
  1. VALTREX [Suspect]
     Indication: HERPES ZOSTER
     Dosage: 1000MG TWICE PER DAY
     Route: 048
     Dates: start: 20040723, end: 20040726
  2. ZOVIRAX [Suspect]
     Indication: HERPES ZOSTER
     Dosage: 125MG SEE DOSAGE TEXT
     Route: 042
     Dates: start: 20040723, end: 20040727
  3. ANTIPYRETICS [Concomitant]
  4. ANALGESICS [Concomitant]
  5. ANTI-INFLAMMATORY AGENTS [Concomitant]

REACTIONS (6)
  - COORDINATION ABNORMAL [None]
  - DELIRIUM [None]
  - DIZZINESS [None]
  - HALLUCINATION [None]
  - HALLUCINATION, VISUAL [None]
  - TREATMENT NONCOMPLIANCE [None]
